FAERS Safety Report 8326418 (Version 2)
Quarter: 2012Q4

REPORT INFORMATION
  Report Type: 
  Country: DK (occurrence: DK)
  Receive Date: 20120109
  Receipt Date: 20121221
  Transmission Date: 20130627
  Serious: Yes (Hospitalization, Other)
  Sender: FDA-Public Use
  Company Number: DK-PFIZER INC-2012002862

PATIENT
  Age: 50 Year
  Sex: Female
  Weight: 100 kg

DRUGS (14)
  1. ZELDOX [Suspect]
     Dosage: 40 mg, 2x/day
     Route: 048
  2. ZELDOX [Suspect]
     Dosage: 80 mg, 2x/day
     Route: 048
  3. SUMATRIPTAN [Concomitant]
     Dosage: 50 mg, as needed
  4. TRUXAL [Concomitant]
     Dosage: 25 mg, as needed
  5. IMOCLONE [Concomitant]
     Dosage: UNK
  6. CITALOPRAM [Concomitant]
     Dosage: UNK
  7. BRICANYL COMP. [Concomitant]
     Dosage: 0.5 mg, single
     Route: 055
  8. OXYNORM [Concomitant]
     Dosage: UNK
  9. BRUFEN [Concomitant]
     Dosage: UNK
  10. ESTROGENS [Concomitant]
     Dosage: UNK
  11. PINEX [Concomitant]
     Dosage: 1000 mg, 4x/day
  12. LOSEC [Concomitant]
     Dosage: 20 mg, 2x/day
  13. KALEORID [Concomitant]
     Dosage: 1500 mg, 3x/day
  14. ZOLPIDEM [Concomitant]
     Dosage: 10 mg, 1x/day

REACTIONS (4)
  - Sepsis [Recovered/Resolved with Sequelae]
  - Pneumonia [Recovered/Resolved with Sequelae]
  - Myopathy [Unknown]
  - Neuropathy peripheral [Unknown]
